FAERS Safety Report 7293269-X (Version None)
Quarter: 2011Q1

REPORT INFORMATION
  Report Type: 
  Country: None (occurrence: None)
  Receive Date: 20110204
  Receipt Date: 20110128
  Transmission Date: 20110831
  Serious: Yes (Hospitalization, Disabling, Other)
  Sender: FDA-Public Use
  Company Number: 2009SP036873

PATIENT
  Age: 47 Year
  Sex: Female
  Weight: 68.0396 kg

DRUGS (10)
  1. NUVARING [Suspect]
  2. IBUPROFEN [Concomitant]
  3. LISINOPRIL [Concomitant]
  4. HYDROCODONE [Concomitant]
  5. PHENYLEPHRINE [Concomitant]
  6. NUVARING [Suspect]
  7. ACIPHEX [Concomitant]
  8. ZITHROMAX [Concomitant]
  9. ANCEF [Concomitant]
  10. NUVARING [Suspect]
     Indication: OVARIAN CYST
     Dates: start: 20070401, end: 20071014

REACTIONS (24)
  - CEREBROVASCULAR ACCIDENT [None]
  - VERTIGO [None]
  - COMA [None]
  - CERVICAL DYSPLASIA [None]
  - EAR PAIN [None]
  - RHINITIS ALLERGIC [None]
  - HYPERTENSION [None]
  - SUPERIOR SAGITTAL SINUS THROMBOSIS [None]
  - IRON DEFICIENCY ANAEMIA [None]
  - NAUSEA [None]
  - SINUSITIS [None]
  - TRANSVERSE SINUS THROMBOSIS [None]
  - LEUKOCYTOSIS [None]
  - PHARYNGITIS [None]
  - MEMORY IMPAIRMENT [None]
  - DEEP VEIN THROMBOSIS [None]
  - BRONCHITIS [None]
  - PROTEIN S DEFICIENCY [None]
  - HYPERCOAGULATION [None]
  - IMPAIRED DRIVING ABILITY [None]
  - CEREBRAL HAEMORRHAGE [None]
  - RESPIRATORY FAILURE [None]
  - HEADACHE [None]
  - TINNITUS [None]
